FAERS Safety Report 16599661 (Version 1)
Quarter: 2019Q3

REPORT INFORMATION
  Report Type: Spontaneous
  Country: FR (occurrence: FR)
  Receive Date: 20190719
  Receipt Date: 20190719
  Transmission Date: 20191004
  Serious: Yes (Other)
  Sender: FDA-Public Use
  Company Number: FR-BAYER-2019-132497

PATIENT
  Age: 83 Year
  Sex: Female
  Weight: 76 kg

DRUGS (7)
  1. CIFLOX 750 MG [Suspect]
     Active Substance: CIPROFLOXACIN
     Indication: PSEUDOMONAS INFECTION
     Dosage: 1500 MG, QD
     Route: 048
     Dates: start: 20190311, end: 20190330
  2. ATORVASTATIN [Concomitant]
     Active Substance: ATORVASTATIN
     Dosage: 10 MG, QD
     Route: 048
  3. LOVENOX HP [Concomitant]
     Active Substance: ENOXAPARIN SODIUM
     Dosage: 1 DF, QD
     Route: 058
  4. CEFEPIME [Suspect]
     Active Substance: CEFEPIME HYDROCHLORIDE
     Indication: PSEUDOMONAS INFECTION
     Dosage: 6 G, QD
     Route: 041
     Dates: start: 20190311, end: 20190329
  5. LEVETIRACETAM. [Concomitant]
     Active Substance: LEVETIRACETAM
     Dosage: 1000 MG, QD
     Route: 048
  6. ATENOLOL ARROW [Concomitant]
     Active Substance: ATENOLOL
     Dosage: 50 MG, QD
     Route: 048
  7. PERINDOPRIL [Concomitant]
     Active Substance: PERINDOPRIL
     Dosage: 1.5 DF, QD
     Route: 048

REACTIONS (3)
  - Rash [Recovered/Resolved]
  - Vomiting [Recovered/Resolved]
  - Neutropenia [Recovered/Resolved]

NARRATIVE: CASE EVENT DATE: 20190329
